FAERS Safety Report 6843685-2 (Version None)
Quarter: 2010Q3

REPORT INFORMATION
  Report Type: 
  Country: None (occurrence: None)
  Receive Date: 20100715
  Receipt Date: 20100703
  Transmission Date: 20110219
  Serious: Yes (Hospitalization, Other)
  Sender: FDA-Public Use
  Company Number: CA-ELI_LILLY_AND_COMPANY-CA201007000761

PATIENT
  Age: 78 Year
  Sex: Female

DRUGS (8)
  1. FORTEO [Suspect]
     Indication: OSTEOPOROSIS
     Dosage: 20 UG, DAILY (1/D)
     Dates: start: 20100421
  2. ASPIRIN [Concomitant]
  3. MAVIK [Concomitant]
  4. CRESTOR [Concomitant]
  5. VITAMIN D [Concomitant]
  6. LORAZEPAM [Concomitant]
  7. TYLENOL (CAPLET) [Concomitant]
  8. CITALOPRAM [Concomitant]

REACTIONS (3)
  - FALL [None]
  - LOWER LIMB FRACTURE [None]
  - NEPHROLITHIASIS [None]
